FAERS Safety Report 14610010 (Version 1)
Quarter: 2018Q1

REPORT INFORMATION
  Report Type: Spontaneous
  Country: US (occurrence: US)
  Receive Date: 20180307
  Receipt Date: 20180307
  Transmission Date: 20180509
  Serious: No
  Sender: FDA-Public Use
  Company Number: None

PATIENT
  Age: 43 Year
  Sex: Male
  Weight: 101.25 kg

DRUGS (7)
  1. BENADRYL [Concomitant]
     Active Substance: DIPHENHYDRAMINE HYDROCHLORIDE
  2. MULTI-VITAMIN [Concomitant]
     Active Substance: .ALPHA.-TOCOPHEROL ACETATE, DL-\ASCORBIC ACID\CYANOCOBALAMIN\FLUORIDE ION\FOLIC ACID\NIACIN\PYRIDOXINE\RIBOFLAVIN\THIAMINE\VITAMIN A\VITAMIN D
  3. PROBIOTIC [Concomitant]
     Active Substance: PROBIOTICS NOS
  4. DEPLIN [Concomitant]
     Active Substance: LEVOMEFOLATE CALCIUM
  5. CBD [Concomitant]
     Active Substance: CANNABIDIOL
  6. ADVIL [Concomitant]
     Active Substance: IBUPROFEN
  7. LEXAPRO [Suspect]
     Active Substance: ESCITALOPRAM OXALATE
     Indication: OBSESSIVE-COMPULSIVE DISORDER
     Route: 048
     Dates: start: 20171218, end: 20180307

REACTIONS (8)
  - Sexual dysfunction [None]
  - Anorgasmia [None]
  - Erectile dysfunction [None]
  - Libido decreased [None]
  - Penile size reduced [None]
  - Testicular atrophy [None]
  - Sensory disturbance [None]
  - Genital disorder male [None]

NARRATIVE: CASE EVENT DATE: 20180306
